FAERS Safety Report 7423532-0 (Version None)
Quarter: 2011Q2

REPORT INFORMATION
  Report Type: 
  Country: None (occurrence: None)
  Receive Date: 20110419
  Receipt Date: 20110413
  Transmission Date: 20111010
  Serious: Yes (Hospitalization)
  Sender: FDA-Public Use
  Company Number: PHHY2010JP68482

PATIENT
  Sex: Female
  Weight: 54 kg

DRUGS (5)
  1. FEMARA [Suspect]
     Indication: BREAST CANCER
     Route: 048
  2. GLYBURIDE [Concomitant]
  3. AMLODIN [Concomitant]
  4. TAKEPRON [Concomitant]
     Indication: GASTRIC ULCER
     Dosage: 30 MG, UNK
     Route: 048
     Dates: start: 20080813
  5. UFT [Concomitant]
     Indication: BREAST CANCER
     Dosage: 40 MG, UNK
     Dates: start: 20040421

REACTIONS (3)
  - HYPOKALAEMIA [None]
  - METABOLIC ALKALOSIS [None]
  - ELECTROCARDIOGRAM ABNORMAL [None]
